FAERS Safety Report 9410211 (Version 1)
Quarter: 2013Q2

REPORT INFORMATION
  Report Type: Spontaneous
  Country: DE (occurrence: None)
  Receive Date: 20130404
  Receipt Date: 20130404
  Transmission Date: 20140414
  Serious: Yes (Other)
  Sender: FDA-Public Use
  Company Number: GER/GER/13/0028792

PATIENT
  Age: 79 Year
  Sex: Male
  Weight: 80 kg

DRUGS (10)
  1. SIMVASTATIN (SIMVASTATIN) [Suspect]
     Indication: PRODUCT USED FOR UNKNOWN INDICATION
     Dosage: STOPPED
  2. MEROPENEM (MEROPENEM TRIHYDRATE) [Concomitant]
  3. AMITRIPTYLINE (AMITRIPTYLINE HYDROCHLORIDE) [Concomitant]
  4. ASS (ACETYLSALICYLIC ACID) [Concomitant]
  5. METOCLOPRAMIDE (METOCLOPRAMIDE HYDROCHLORIDE) [Concomitant]
  6. ERYTHROMYCIN (ERYTHROMYCIN STEARATE) [Concomitant]
  7. MOXONIDINE (MOXONIDINE) [Concomitant]
  8. ENALAPRIL (ENALAPRIL MALEATE) [Concomitant]
  9. BELOC (METOPROLOL TARTRATE) [Concomitant]
  10. AMLODIPINE (AMLODIPINE BESILATE) [Concomitant]

REACTIONS (4)
  - Abdominal rigidity [None]
  - Skin induration [None]
  - Muscle spasms [None]
  - Rhabdomyolysis [None]
